FAERS Safety Report 14767010 (Version 1)
Quarter: 2018Q2

REPORT INFORMATION
  Report Type: Spontaneous
  Country: US (occurrence: US)
  Receive Date: 20180417
  Receipt Date: 20180417
  Transmission Date: 20180711
  Serious: No
  Sender: FDA-Public Use
  Company Number: US-BIOGEN-2018BI00554510

PATIENT
  Sex: Female

DRUGS (2)
  1. TYSABRI [Suspect]
     Active Substance: NATALIZUMAB
     Indication: MULTIPLE SCLEROSIS
     Route: 065
     Dates: start: 20120424, end: 20151030
  2. TYSABRI [Suspect]
     Active Substance: NATALIZUMAB
     Dates: start: 20160901

REACTIONS (1)
  - Trigeminal neuralgia [Recovered/Resolved]
